APPROVED DRUG PRODUCT: FOLVRON
Active Ingredient: FERROUS SULFATE; FOLIC ACID
Strength: 182MG;0.33MG
Dosage Form/Route: CAPSULE;ORAL
Application: N006012 | Product #003
Applicant: LEDERLE LABORATORIES DIV AMERICAN CYANAMID CO
Approved: Approved Prior to Jan 1, 1982 | RLD: No | RS: No | Type: DISCN